FAERS Safety Report 23707276 (Version 2)
Quarter: 2024Q2

REPORT INFORMATION
  Report Type: Report from Study
  Country: CA (occurrence: CA)
  Receive Date: 20240404
  Receipt Date: 20240405
  Transmission Date: 20240715
  Serious: Yes (Hospitalization, Other)
  Sender: FDA-Public Use
  Company Number: CA-HLS-202400881

PATIENT
  Age: 60 Year
  Sex: Female

DRUGS (15)
  1. CLOZARIL [Suspect]
     Active Substance: CLOZAPINE
     Dosage: 200 MG BY MOUTH BEDTIME
     Route: 048
     Dates: start: 20230719
  2. ALBUTEROL [Concomitant]
     Active Substance: ALBUTEROL
     Indication: Product used for unknown indication
     Dosage: 2-4  INH EVERY 6 HOURS WHEN NEEDED
     Route: 065
  3. TRELEGY ELLIPTA [Concomitant]
     Active Substance: FLUTICASONE FUROATE\UMECLIDINIUM BROMIDE\VILANTEROL TRIFENATATE
     Indication: Product used for unknown indication
     Dosage: 1 INH DAILY
     Route: 065
  4. ASPIRIN [Concomitant]
     Active Substance: ASPIRIN
     Indication: Product used for unknown indication
     Dosage: 81 MG ORALLY DAILY
     Route: 048
  5. ATORVASTATIN [Concomitant]
     Active Substance: ATORVASTATIN
     Indication: Product used for unknown indication
     Dosage: 20 MG ORALLY BEDTIME
     Route: 048
  6. OLANZAPINE [Concomitant]
     Active Substance: OLANZAPINE
     Indication: Product used for unknown indication
     Dosage: 10 MG BY MOUTH THREE TIMES DAILY WHEN NEEDED
     Route: 048
  7. ARIPIPRAZOLE [Concomitant]
     Active Substance: ARIPIPRAZOLE
     Indication: Product used for unknown indication
     Dosage: 400 MG INTRAMUSCULAR EVERY 28 DAYS
     Route: 065
  8. POLYETHYLENE GLYCOL [Concomitant]
     Active Substance: POLYETHYLENE GLYCOL
     Indication: Product used for unknown indication
     Dosage: 17 G BY MOUTH BEDTIME WHEN NEEDED
     Route: 048
  9. BISACODYL [Concomitant]
     Active Substance: BISACODYL
     Indication: Product used for unknown indication
     Dosage: 10 MG RECTALLY WHEN NEEDED
     Route: 054
  10. QUETIAPINE [Concomitant]
     Active Substance: QUETIAPINE
     Indication: Product used for unknown indication
     Dosage: 25 MG THREE TIMES DAILY
     Route: 048
  11. ACETAMINOPHEN [Concomitant]
     Active Substance: ACETAMINOPHEN
     Indication: Product used for unknown indication
     Dosage: 650 MG BY MOUTH EVERY 4 HOURS WHEN NEEDED
     Route: 048
  12. SENNOSIDES [Concomitant]
     Active Substance: SENNOSIDES
     Indication: Product used for unknown indication
     Dosage: 8.6 MG BY MOUTH TWICE DAILY
     Route: 048
  13. VENTOLIN [Concomitant]
     Active Substance: ALBUTEROL SULFATE
     Indication: Product used for unknown indication
     Route: 065
  14. ATROVENT [Concomitant]
     Active Substance: IPRATROPIUM BROMIDE
     Indication: Dyspnoea
     Route: 065
  15. ALBUTEROL SULFATE [Concomitant]
     Active Substance: ALBUTEROL SULFATE
     Dosage: 2 INHALER FOUR TIMES IN DAY
     Route: 065

REACTIONS (23)
  - Blood pressure decreased [Recovering/Resolving]
  - Chronic obstructive pulmonary disease [Unknown]
  - Cyanosis [Unknown]
  - Oxygen saturation decreased [Unknown]
  - Delusion [Unknown]
  - Pyrexia [Unknown]
  - Blood glucose increased [Unknown]
  - Paranoia [Unknown]
  - Heart rate increased [Recovering/Resolving]
  - Lymphocyte count decreased [Unknown]
  - Mean cell volume increased [Unknown]
  - Monocyte count increased [Unknown]
  - Neutrophil count increased [Unknown]
  - Pericardial effusion [Unknown]
  - Fall [Unknown]
  - Respiratory rate increased [Recovered/Resolved]
  - Dyspnoea [Unknown]
  - Myocarditis [Unknown]
  - Therapy interrupted [Unknown]
  - Troponin increased [Unknown]
  - White blood cell count increased [Unknown]
  - Asthenia [Unknown]
  - Wheezing [Unknown]

NARRATIVE: CASE EVENT DATE: 20230901
